FAERS Safety Report 12121347 (Version 2)
Quarter: 2018Q2

REPORT INFORMATION
  Report Type: Spontaneous
  Country: US (occurrence: US)
  Receive Date: 20160226
  Receipt Date: 20180419
  Transmission Date: 20180711
  Serious: Yes (Other)
  Sender: FDA-Public Use
  Company Number: US-PFIZER INC-2016125083

PATIENT
  Age: 45 Year
  Sex: Female

DRUGS (1)
  1. NICOTINE. [Suspect]
     Active Substance: NICOTINE
     Dosage: UNK

REACTIONS (4)
  - Xanthogranuloma [Unknown]
  - Intestinal obstruction [Unknown]
  - Oophoritis [Unknown]
  - Adnexa uteri mass [Unknown]
